FAERS Safety Report 8086866-5 (Version None)
Quarter: 2012Q1

REPORT INFORMATION
  Report Type: 
  Country: None (occurrence: None)
  Receive Date: 20120128
  Receipt Date: 20110614
  Transmission Date: 20120608
  Serious: No
  Sender: FDA-Public Use
  Company Number: US-ABBOTT-11P-163-0732226-00

PATIENT
  Sex: Male

DRUGS (3)
  1. ATENOLOL [Concomitant]
     Indication: HYPERTENSION
     Route: 048
  2. HUMIRA [Suspect]
     Indication: ILL-DEFINED DISORDER
     Route: 058
     Dates: start: 20100901
  3. HUMIRA [Suspect]
     Indication: ANKYLOSING SPONDYLITIS

REACTIONS (3)
  - RHINORRHOEA [None]
  - SINUSITIS [None]
  - WHITE BLOOD CELL COUNT INCREASED [None]
